FAERS Safety Report 4980653-X (Version None)
Quarter: 2006Q2

REPORT INFORMATION
  Report Type: 
  Country: None (occurrence: None)
  Receive Date: 20060424
  Receipt Date: 20050927
  Transmission Date: 20061013
  Serious: Yes (Hospitalization)
  Sender: FDA-Public Use
  Company Number: US-MERCK-0509USA04699

PATIENT
  Age: 56 Year
  Sex: Male
  Weight: 92 kg

DRUGS (6)
  1. VIOXX [Suspect]
     Indication: PAIN IN EXTREMITY
     Route: 048
     Dates: start: 20000101, end: 20040101
  2. VIOXX [Suspect]
     Indication: ARTHRALGIA
     Route: 048
     Dates: start: 20000101, end: 20040101
  3. HYDROCHLOROTHIAZIDE TABLETS (USP 23) [Concomitant]
     Route: 065
  4. ZESTRIL [Concomitant]
     Route: 048
  5. PRINIVIL [Concomitant]
     Route: 048
  6. HYTRIN [Concomitant]
     Route: 065

REACTIONS (4)
  - ARTHROPATHY [None]
  - MYOCARDIAL INFARCTION [None]
  - NON-CARDIAC CHEST PAIN [None]
  - RADICULOPATHY [None]
